FAERS Safety Report 6724049-9 (Version None)
Quarter: 2010Q2

REPORT INFORMATION
  Report Type: 
  Country: None (occurrence: None)
  Receive Date: 20100513
  Receipt Date: 20100503
  Transmission Date: 20101027
  Serious: Yes (Death, Hospitalization)
  Sender: FDA-Public Use
  Company Number: B0650461A

PATIENT
  Age: 46 Year
  Sex: Male

DRUGS (13)
  1. DEXAMETHASONE [Suspect]
     Indication: FATIGUE
     Route: 048
  2. DEXAMETHASONE [Suspect]
     Indication: ROUTINE HEALTH MAINTENANCE
     Route: 048
  3. MORPHINE [Suspect]
     Indication: PAIN
  4. NAPROXEN [Suspect]
     Indication: PAIN
  5. MIDAZOLAM HCL [Suspect]
     Indication: PAIN
     Route: 058
  6. WARFARIN SODIUM [Suspect]
     Indication: PULMONARY EMBOLISM
  7. WARFARIN SODIUM [Suspect]
     Indication: DEEP VEIN THROMBOSIS
  8. NULYTELY [Suspect]
     Indication: CONSTIPATION
  9. CARBOPLATIN [Suspect]
     Indication: CHEMOTHERAPY
  10. FLUDROCORTISONE [Suspect]
  11. DIAMORPHINE [Suspect]
     Indication: PAIN
     Route: 058
  12. KETAMINE [Suspect]
  13. HYDROCORTISONE [Suspect]
     Route: 042

REACTIONS (17)
  - ADRENAL INSUFFICIENCY [None]
  - AGITATION [None]
  - CONSTIPATION [None]
  - DEATH [None]
  - DEEP VEIN THROMBOSIS [None]
  - GENERAL PHYSICAL HEALTH DETERIORATION [None]
  - HAEMORRHAGE [None]
  - HYPERKALAEMIA [None]
  - HYPONATRAEMIA [None]
  - HYPOTENSION [None]
  - LYMPHADENOPATHY [None]
  - MALIGNANT NEOPLASM PROGRESSION [None]
  - METASTASES TO ADRENALS [None]
  - METASTASES TO LIVER [None]
  - PULMONARY EMBOLISM [None]
  - TACHYCARDIA [None]
  - TUMOUR HAEMORRHAGE [None]
